FAERS Safety Report 4614075-8 (Version None)
Quarter: 2005Q1

REPORT INFORMATION
  Report Type: 
  Country: None (occurrence: None)
  Receive Date: 20050316
  Receipt Date: 20050224
  Transmission Date: 20050727
  Serious: Yes (Death)
  Sender: FDA-Public Use
  Company Number: US_0502113401

PATIENT
  Sex: Female

DRUGS (10)
  1. VINCRISTINE SULFATE [Suspect]
     Indication: ACUTE LYMPHOCYTIC LEUKAEMIA
     Dosage: 1.5 MG /M2 OTHER
     Route: 050
  2. DEXAMETHASONE [Concomitant]
  3. DOXORUBICIN HCL [Concomitant]
  4. ELSPAR [Concomitant]
  5. THIOGUANINE [Concomitant]
  6. CYCLOPHOSPHAMIDE [Concomitant]
  7. CYTARABINE [Concomitant]
  8. ACUTE LYMOHOBLASTIC LEUKEMIA [Concomitant]
  9. METHOTREXATE [Concomitant]
  10. METHYLPREDNISOLONE [Concomitant]

REACTIONS (1)
  - PSEUDOMONAL SEPSIS [None]
